FAERS Safety Report 9513690 (Version 1)
Quarter: 2013Q3

REPORT INFORMATION
  Report Type: Spontaneous
  Country: US (occurrence: US)
  Receive Date: 20130910
  Receipt Date: 20130910
  Transmission Date: 20140515
  Serious: Yes (Other)
  Sender: FDA-Public Use
  Company Number: US-BAYER-2013-109232

PATIENT
  Age: 71 Year
  Sex: Male
  Weight: 83.9 kg

DRUGS (6)
  1. ALEVE TABLET [Suspect]
     Indication: GOUT
     Dosage: 2 DF, PRN
     Route: 048
     Dates: start: 2012, end: 20130906
  2. ALEVE TABLET [Suspect]
     Indication: GOUT
  3. ALEVE CAPLET [Suspect]
     Indication: GOUT
  4. BAYER ASPIRIN REGIMEN REGULAR 325 MG STRENGTH [Concomitant]
  5. AMLODIPINE [Concomitant]
  6. LOSARTAN [Concomitant]

REACTIONS (7)
  - Hypersensitivity [Recovered/Resolved]
  - Urticaria [Recovered/Resolved]
  - Dizziness [Recovered/Resolved]
  - Pruritus generalised [Recovered/Resolved]
  - Wheezing [Recovered/Resolved]
  - Lip swelling [Recovered/Resolved]
  - Off label use [None]
